FAERS Safety Report 8189231-5 (Version None)
Quarter: 2012Q1

REPORT INFORMATION
  Report Type: 
  Country: None (occurrence: None)
  Receive Date: 20120306
  Receipt Date: 20120306
  Transmission Date: 20120608
  Serious: No
  Sender: FDA-Public Use
  Company Number: None

PATIENT
  Sex: Female

DRUGS (1)
  1. PEG-INTRON [Suspect]
     Dosage: I50 MCG/0.5ML SC NJECT 50MCG SUBCUTANEOUSLY EVERY WEEK
     Route: 058
     Dates: start: 20120101

REACTIONS (2)
  - DEPRESSION [None]
  - ANXIETY [None]
